FAERS Safety Report 8554860 (Version 2)
Quarter: 2013Q4

REPORT INFORMATION
  Report Type: Spontaneous
  Country: US (occurrence: US)
  Receive Date: 20120510
  Receipt Date: 20131108
  Transmission Date: 20140711
  Serious: Yes (Other)
  Sender: FDA-Public Use
  Company Number: US-PFIZER INC-2012113241

PATIENT
  Sex: Female

DRUGS (2)
  1. CHANTIX [Suspect]
     Indication: SMOKING CESSATION THERAPY
     Dosage: UNK
  2. CHANTIX [Suspect]
     Dosage: UNK
     Dates: start: 2013, end: 201310

REACTIONS (6)
  - Depression [Unknown]
  - Skin exfoliation [Unknown]
  - Rash generalised [Unknown]
  - Oedema [Unknown]
  - Abnormal dreams [Unknown]
  - Dysgeusia [Unknown]
